FAERS Safety Report 5444756-8 (Version None)
Quarter: 2007Q3

REPORT INFORMATION
  Report Type: 
  Country: None (occurrence: None)
  Receive Date: 20070906
  Receipt Date: 20070301
  Transmission Date: 20080115
  Serious: No
  Sender: FDA-Public Use
  Company Number: A0641504A

PATIENT
  Age: 72 Year
  Sex: Male

DRUGS (6)
  1. REQUIP [Suspect]
     Indication: RESTLESS LEGS SYNDROME
     Dosage: 1.5MG PER DAY
     Route: 048
     Dates: start: 20070201, end: 20070228
  2. NITROGLYCERIN [Suspect]
  3. LORAZEPAM [Concomitant]
  4. LIPITOR [Concomitant]
  5. ATENOLOL [Concomitant]
  6. FLOMAX [Concomitant]

REACTIONS (4)
  - DISTURBANCE IN ATTENTION [None]
  - HEADACHE [None]
  - LIBIDO INCREASED [None]
  - MENTAL IMPAIRMENT [None]
